FAERS Safety Report 4705865-1 (Version None)
Quarter: 2005Q2

REPORT INFORMATION
  Report Type: 
  Country: None (occurrence: None)
  Receive Date: 20050629
  Receipt Date: 20050405
  Transmission Date: 20051028
  Serious: No
  Sender: FDA-Public Use
  Company Number: 05P-163-0295365-00

PATIENT
  Age: 74 Year
  Sex: Female
  Weight: 118 kg

DRUGS (16)
  1. HUMIRA [Suspect]
     Indication: RHEUMATOID ARTHRITIS
     Dosage: 40 MG, 1 IN 2 WK, SUBCUTANEOUS
     Route: 058
     Dates: start: 20050323
  2. KARVEA HCT [Concomitant]
  3. FOLIC ACID [Concomitant]
  4. CEVIMELINE HYDROCHLORIDE [Concomitant]
  5. ZINC [Concomitant]
  6. FISH OIL [Concomitant]
  7. ASCORBIC ACID [Concomitant]
  8. TOCOPHEROL CONCENTRATE CAP [Concomitant]
  9. MULTIVITAMIN [Concomitant]
  10. METHOTREXATE [Concomitant]
  11. NAPROXEN [Concomitant]
  12. ACETAMINOPHEN [Concomitant]
  13. PREDNISONE TAB [Concomitant]
  14. ESOMEPRAZOLE [Concomitant]
  15. RABEPRAZOLE SODIUM [Concomitant]
  16. OXCAL WITH VITAMIN D [Concomitant]

REACTIONS (7)
  - DEHYDRATION [None]
  - DIARRHOEA [None]
  - FAECES DISCOLOURED [None]
  - MELAENA [None]
  - NAUSEA [None]
  - OEDEMA PERIPHERAL [None]
  - PAIN IN EXTREMITY [None]
